FAERS Safety Report 18122013 (Version 5)
Quarter: 2022Q1

REPORT INFORMATION
  Report Type: Report from Study
  Country: US (occurrence: US)
  Receive Date: 20200807
  Receipt Date: 20220307
  Transmission Date: 20220423
  Serious: Yes (Other)
  Sender: FDA-Public Use
  Company Number: US-ABBVIE-20K-163-3512341-00

PATIENT
  Sex: Female
  Weight: 86.260 kg

DRUGS (4)
  1. HUMIRA [Suspect]
     Active Substance: ADALIMUMAB
     Indication: Ankylosing spondylitis
     Dosage: CITRATE FREE
     Route: 058
     Dates: start: 20200326, end: 20200730
  2. HUMIRA [Suspect]
     Active Substance: ADALIMUMAB
     Indication: Uveitis
     Route: 058
     Dates: start: 20200910
  3. ZYRTEC [Concomitant]
     Active Substance: CETIRIZINE HYDROCHLORIDE
     Indication: Product used for unknown indication
  4. UNSPECIFIED INGREDIENT [Concomitant]
     Active Substance: UNSPECIFIED INGREDIENT
     Indication: Contraception

REACTIONS (16)
  - Nasal septum deviation [Recovered/Resolved]
  - Hydrocephalus [Recovered/Resolved]
  - Tremor [Unknown]
  - Pain in extremity [Unknown]
  - Eye pain [Recovered/Resolved]
  - Dry mouth [Not Recovered/Not Resolved]
  - Oropharyngeal pain [Not Recovered/Not Resolved]
  - Middle insomnia [Not Recovered/Not Resolved]
  - Fungal infection [Not Recovered/Not Resolved]
  - Urinary tract infection [Not Recovered/Not Resolved]
  - Dry throat [Recovered/Resolved]
  - Dyspepsia [Unknown]
  - Maternal exposure during pregnancy [Unknown]
  - Gastrooesophageal reflux disease [Recovered/Resolved]
  - Enlarged uvula [Recovered/Resolved]
  - Live birth [Unknown]

NARRATIVE: CASE EVENT DATE: 20200101
